FAERS Safety Report 7258765-X (Version None)
Quarter: 2011Q1

REPORT INFORMATION
  Report Type: 
  Country: None (occurrence: None)
  Receive Date: 20110129
  Receipt Date: 20100528
  Transmission Date: 20110831
  Serious: No
  Sender: FDA-Public Use
  Company Number: US-ABBOTT-10P-163-0648284-00

PATIENT
  Age: 56 Year
  Sex: Female

DRUGS (14)
  1. VITAMIN D [Concomitant]
     Indication: VITAMIN D DEFICIENCY
  2. EVISTA [Concomitant]
     Indication: OSTEOPOROSIS PROPHYLAXIS
  3. ASCORBIC ACID [Concomitant]
     Indication: VITAMIN SUPPLEMENTATION
     Route: 048
  4. ASPIRIN [Concomitant]
     Indication: PRODUCT USED FOR UNKNOWN INDICATION
  5. SINGULAIR [Concomitant]
     Indication: HYPERSENSITIVITY
  6. FOLIC ACID [Concomitant]
     Indication: VITAMIN SUPPLEMENTATION
     Route: 048
  7. PROZAC [Concomitant]
     Indication: PRODUCT USED FOR UNKNOWN INDICATION
     Route: 048
  8. DIOVAN HCT [Concomitant]
     Indication: HYPERTENSION
     Dosage: 160/25 MG
     Route: 048
  9. ADVAIR [Concomitant]
     Indication: ASTHMA
     Route: 055
  10. HUMIRA [Suspect]
     Indication: RHEUMATOID ARTHRITIS
     Dates: start: 20100504, end: 20100504
  11. METHOTREXATE [Concomitant]
     Indication: RHEUMATOID ARTHRITIS
  12. ALLEGRA [Concomitant]
     Indication: HYPERSENSITIVITY
     Route: 048
  13. FISH OIL [Concomitant]
     Indication: BLOOD CHOLESTEROL ABNORMAL
  14. ADVAIR [Concomitant]
     Indication: HYPERSENSITIVITY

REACTIONS (1)
  - BRONCHITIS [None]
